FAERS Safety Report 4564403-7 (Version None)
Quarter: 2005Q1

REPORT INFORMATION
  Report Type: 
  Country: None (occurrence: None)
  Receive Date: 20050128
  Receipt Date: 20050119
  Transmission Date: 20050727
  Serious: Yes (Hospitalization, Other)
  Sender: FDA-Public Use
  Company Number: DE-JNJFOC-20050105183

PATIENT
  Sex: Female
  Weight: 57.5 kg

DRUGS (1)
  1. RISPERDAL [Suspect]
     Indication: SCHIZOPHRENIA
     Route: 049

REACTIONS (4)
  - DEPRESSION [None]
  - MASKED FACIES [None]
  - PARKINSONISM [None]
  - PLEUROTHOTONUS [None]
